FAERS Safety Report 5028499-0 (Version None)
Quarter: 2006Q2

REPORT INFORMATION
  Report Type: 
  Country: None (occurrence: None)
  Receive Date: 20060617
  Receipt Date: 20060606
  Transmission Date: 20061013
  Serious: Yes (Hospitalization)
  Sender: FDA-Public Use
  Company Number: US-SANOFI-SYNTHELABO-A03200603656

PATIENT
  Sex: Male
  Weight: 88.43 kg

DRUGS (5)
  1. LUMIGAN [Concomitant]
     Route: 047
  2. LISINOPRIL AND HYDROCHLOROTHIAZIDE [Concomitant]
     Dosage: 10MG/12.5MG DAILY
     Route: 048
     Dates: start: 20050101
  3. AEROBID [Concomitant]
     Route: 048
  4. DUONEB [Concomitant]
     Dosage: 4 TIMES DAILY
     Route: 065
  5. PLAVIX [Suspect]
     Indication: PERIPHERAL VASCULAR DISORDER
     Route: 048
     Dates: start: 20060501

REACTIONS (3)
  - ASTHENIA [None]
  - CONTUSION [None]
  - FATIGUE [None]
